FAERS Safety Report 6480365-X (Version None)
Quarter: 2009Q4

REPORT INFORMATION
  Report Type: 
  Country: None (occurrence: None)
  Receive Date: 20091208
  Receipt Date: 20091126
  Transmission Date: 20100525
  Serious: Yes (Hospitalization, Other)
  Sender: FDA-Public Use
  Company Number: ES-JNJFOC-20091201057

PATIENT
  Age: 80 Year
  Sex: Female

DRUGS (1)
  1. REMICADE [Suspect]
     Indication: RHEUMATOID ARTHRITIS
     Route: 042
     Dates: start: 20070619, end: 20070925

REACTIONS (3)
  - CARDIAC FAILURE CONGESTIVE [None]
  - LEG AMPUTATION [None]
  - PERIPHERAL ISCHAEMIA [None]
